FAERS Safety Report 7454834-X (Version None)
Quarter: 2011Q2

REPORT INFORMATION
  Report Type: 
  Country: None (occurrence: None)
  Receive Date: 20110503
  Receipt Date: 20100512
  Transmission Date: 20111010
  Serious: No
  Sender: FDA-Public Use
  Company Number: US-PFIZER INC-2010060300

PATIENT
  Sex: Female
  Weight: 44.4 kg

DRUGS (2)
  1. PLAN B [Suspect]
     Indication: CONTRACEPTION
     Dosage: 1.5 MG, SINGLE (1 IN 1 DAY)
     Route: 048
     Dates: start: 20100428, end: 20100428
  2. DEPO-PROVERA [Suspect]
     Indication: CONTRACEPTION
     Dosage: UNK
     Dates: start: 20100417

REACTIONS (1)
  - METRORRHAGIA [None]
